FAERS Safety Report 6779132-9 (Version None)
Quarter: 2010Q2

REPORT INFORMATION
  Report Type: 
  Country: None (occurrence: None)
  Receive Date: 20100618
  Receipt Date: 20100614
  Transmission Date: 20101027
  Serious: Yes (Other)
  Sender: FDA-Public Use
  Company Number: BR-BRISTOL-MYERS SQUIBB COMPANY-15031883

PATIENT
  Age: 46 Year
  Sex: Female
  Weight: 90 kg

DRUGS (10)
  1. REYATAZ [Suspect]
     Indication: HIV INFECTION
     Dosage: ONE ORAL CAPSULE
     Route: 048
     Dates: start: 20100201
  2. LAMIVUDINE [Suspect]
     Indication: HIV INFECTION
     Dates: start: 20100201
  3. TENOFOVIR [Suspect]
     Indication: HIV INFECTION
     Dates: start: 20100201
  4. RITONAVIR [Suspect]
     Indication: HIV INFECTION
     Dates: start: 20100201
  5. ZOLPIDEM [Concomitant]
     Indication: BIPOLAR DISORDER
  6. TOPAMAX [Concomitant]
     Indication: BIPOLAR DISORDER
  7. HIXIZINE [Concomitant]
     Indication: HYPERSENSITIVITY
  8. HYDROXYZINE [Concomitant]
  9. ISONIAZID [Concomitant]
  10. VITAMIN B6 [Concomitant]

REACTIONS (5)
  - ARRHYTHMIA [None]
  - CONFUSIONAL STATE [None]
  - COORDINATION ABNORMAL [None]
  - DIZZINESS [None]
  - MEMORY IMPAIRMENT [None]
